FAERS Safety Report 9746317 (Version 1)
Quarter: 2013Q4

REPORT INFORMATION
  Report Type: Spontaneous
  Country: US (occurrence: None)
  Receive Date: 20131209
  Receipt Date: 20131209
  Transmission Date: 20140711
  Serious: Yes (Other)
  Sender: FDA-Public Use
  Company Number: None

PATIENT
  Age: 53 Year
  Sex: Female
  Weight: 62.6 kg

DRUGS (1)
  1. PROLIA [Suspect]
     Dosage: GIVEN INTO/UNDER SKIN
     Dates: start: 20130701

REACTIONS (1)
  - Osteonecrosis of jaw [None]
